FAERS Safety Report 17237944 (Version 1)
Quarter: 2020Q1

REPORT INFORMATION
  Report Type: Spontaneous
  Country: US (occurrence: US)
  Receive Date: 20200106
  Receipt Date: 20200106
  Transmission Date: 20200409
  Serious: No
  Sender: FDA-Public Use
  Company Number: US-PACIRA-201800025

PATIENT
  Age: 19 Year
  Sex: Female

DRUGS (2)
  1. ROPIVACAINE. [Suspect]
     Active Substance: ROPIVACAINE HYDROCHLORIDE
     Indication: NERVE BLOCK
     Dosage: 50 MG, SINGLE, FREQUENCY : SINGLE
  2. EXPAREL [Suspect]
     Active Substance: BUPIVACAINE
     Indication: NERVE BLOCK
     Dosage: 133 MG, SINGLE, FREQUENCY : SINGLE

REACTIONS (2)
  - Labelled drug-drug interaction medication error [Unknown]
  - No adverse event [Unknown]
